FAERS Safety Report 15404083 (Version 1)
Quarter: 2018Q3

REPORT INFORMATION
  Report Type: Spontaneous
  Country: US (occurrence: US)
  Receive Date: 20180919
  Receipt Date: 20180919
  Transmission Date: 20181010
  Serious: No
  Sender: FDA-Public Use
  Company Number: US-AVADEL SPECIALTY PHARMACEUTICALS, LLC-2018AVA00259

PATIENT
  Sex: Male
  Weight: 79.37 kg

DRUGS (12)
  1. NOCTIVA [Suspect]
     Active Substance: DESMOPRESSIN ACETATE
     Indication: NOCTURIA
     Dosage: 1.66 ?G, 1X/DAY
     Route: 045
     Dates: start: 2018
  2. METOPROLOL. [Concomitant]
     Active Substance: METOPROLOL
  3. UNSPECIFIED STOMACH ACID MEDICATION [Concomitant]
  4. AMIODARONE [Concomitant]
     Active Substance: AMIODARONE
  5. DIGOX [Concomitant]
     Active Substance: DIGOXIN
  6. FOLIC ACID. [Concomitant]
     Active Substance: FOLIC ACID
  7. UNSPECIFIED MEDICATIONS FOR ATRIAL FIBRILLATION [Concomitant]
  8. ^FORMAMIDE^ [Concomitant]
  9. ELIQUIS [Concomitant]
     Active Substance: APIXABAN
  10. MULTIVITAMIN [Concomitant]
     Active Substance: VITAMINS
  11. VITAMIN B12 [Concomitant]
     Active Substance: CYANOCOBALAMIN
  12. POTASSIUM CHLORIDE. [Concomitant]
     Active Substance: POTASSIUM CHLORIDE

REACTIONS (2)
  - Product quality issue [Unknown]
  - Diarrhoea [Not Recovered/Not Resolved]

NARRATIVE: CASE EVENT DATE: 2018
